FAERS Safety Report 5812591-4 (Version None)
Quarter: 2008Q3

REPORT INFORMATION
  Report Type: 
  Country: None (occurrence: None)
  Receive Date: 20080711
  Receipt Date: 20080701
  Transmission Date: 20090109
  Serious: Yes (Other)
  Sender: FDA-Public Use
  Company Number: 2008AL003969

PATIENT
  Age: 62 Year
  Sex: Female

DRUGS (1)
  1. DIGOXIN [Suspect]
     Indication: CARDIAC FIBRILLATION
     Dates: start: 20030101, end: 20080507

REACTIONS (3)
  - CONDITION AGGRAVATED [None]
  - PALPITATIONS [None]
  - UNEVALUABLE EVENT [None]
